FAERS Safety Report 5216623-6 (Version None)
Quarter: 2007Q1

REPORT INFORMATION
  Report Type: 
  Country: None (occurrence: None)
  Receive Date: 20061130
  Receipt Date: 20060620
  Transmission Date: 20070707
  Serious: Yes (Hospitalization)
  Sender: FDA-Public Use
  Company Number: US200604004387

PATIENT
  Age: 44 Year
  Sex: Female
  Weight: 61.7 kg

DRUGS (9)
  1. ZYPREXA [Suspect]
     Dosage: SEE IMAGE
     Dates: start: 20000415, end: 20030830
  2. SEROQUEL [Concomitant]
  3. WELLBUTRIN [Concomitant]
  4. CELEXA [Concomitant]
  5. PAXIL [Concomitant]
  6. ZOLOFT [Concomitant]
  7. EFFEXOR [Concomitant]
  8. ATIVAN [Concomitant]
  9. PROPRANOLOL [Concomitant]

REACTIONS (4)
  - CEREBROVASCULAR ACCIDENT [None]
  - DIABETES MELLITUS [None]
  - HYPERGLYCAEMIA [None]
  - HYPERTENSION [None]
